FAERS Safety Report 24324314 (Version 1)
Quarter: 2024Q3

REPORT INFORMATION
  Report Type: Spontaneous
  Country: GB (occurrence: GB)
  Receive Date: 20240916
  Receipt Date: 20240916
  Transmission Date: 20241017
  Serious: Yes (Other)
  Sender: BAYER
  Company Number: None

PATIENT
  Age: 32 Year
  Sex: Male
  Weight: 65 kg

DRUGS (1)
  1. CIPROFLOXACIN [Suspect]
     Active Substance: CIPROFLOXACIN
     Indication: Prostatitis
     Dosage: 250 MG, BID
     Route: 048
     Dates: start: 20240914, end: 20240916

REACTIONS (3)
  - Medication error [Unknown]
  - Chest discomfort [Recovered/Resolved with Sequelae]
  - Palpitations [Recovered/Resolved with Sequelae]
